FAERS Safety Report 6900626-7 (Version None)
Quarter: 2010Q3

REPORT INFORMATION
  Report Type: 
  Country: None (occurrence: None)
  Receive Date: 20100803
  Receipt Date: 20100727
  Transmission Date: 20110219
  Serious: Yes (Hospitalization)
  Sender: FDA-Public Use
  Company Number: JP-BAYER-200812877BYL

PATIENT
  Age: 74 Year
  Sex: Male
  Weight: 56 kg

DRUGS (6)
  1. NEXAVAR [Suspect]
     Indication: RENAL CELL CARCINOMA
     Dosage: TOTAL DAILY DOSE: 800 MG  UNIT DOSE: 200 MG
     Route: 048
     Dates: start: 20081026, end: 20081121
  2. GASTER D [Concomitant]
     Indication: ONCOLOGIC COMPLICATION
     Route: 048
     Dates: start: 20081027, end: 20081121
  3. LASIX [Concomitant]
     Indication: ONCOLOGIC COMPLICATION
     Route: 048
     Dates: start: 20081027, end: 20081121
  4. ADALAT CC [Concomitant]
     Indication: ONCOLOGIC COMPLICATION
     Route: 048
     Dates: start: 20081027, end: 20081121
  5. LAC-B [Concomitant]
     Indication: ONCOLOGIC COMPLICATION
     Dosage: 3/DAY
     Route: 048
     Dates: start: 20081027, end: 20081121
  6. OXYCONTIN [Concomitant]
     Indication: RENAL CELL CARCINOMA
     Route: 048
     Dates: start: 20081027, end: 20081121

REACTIONS (1)
  - LARGE INTESTINAL ULCER [None]
